FAERS Safety Report 5011192-8 (Version None)
Quarter: 2006Q2

REPORT INFORMATION
  Report Type: 
  Country: None (occurrence: None)
  Receive Date: 20060523
  Receipt Date: 20060523
  Transmission Date: 20061013
  Serious: Yes (Death)
  Sender: FDA-Public Use
  Company Number: None

PATIENT
  Age: 44 Year
  Sex: Female

DRUGS (2)
  1. AMIODARONE   BOLUS IV DRIP [Suspect]
     Indication: TACHYCARDIA
     Dosage: 400 Q TWELVE HR
     Dates: start: 20041101, end: 20041129
  2. AMIODARONE  PO 400 Q 12 [Suspect]

REACTIONS (5)
  - DISEASE PROGRESSION [None]
  - DRUG TOXICITY [None]
  - INTERSTITIAL LUNG DISEASE [None]
  - LUNG INJURY [None]
  - RESPIRATORY FAILURE [None]
